FAERS Safety Report 7502015-3 (Version None)
Quarter: 2011Q2

REPORT INFORMATION
  Report Type: 
  Country: None (occurrence: None)
  Receive Date: 20110523
  Receipt Date: 20110523
  Transmission Date: 20111010
  Serious: No
  Sender: FDA-Public Use
  Company Number: None

PATIENT
  Sex: Female
  Weight: 92.9874 kg

DRUGS (2)
  1. CITALOPRAM HYDROBROMIDE [Suspect]
     Indication: PANIC DISORDER
     Dosage: 30MG/DAY QD PO
     Route: 048
     Dates: start: 20050105, end: 20050205
  2. CITALOPRAM HYDROBROMIDE [Suspect]
     Indication: AGORAPHOBIA
     Dosage: 30MG/DAY QD PO
     Route: 048
     Dates: start: 20050105, end: 20050205

REACTIONS (2)
  - MUSCLE SPASMS [None]
  - MUSCLE TWITCHING [None]
